FAERS Safety Report 23214893 (Version 1)
Quarter: 2023Q4

REPORT INFORMATION
  Report Type: Report from Study
  Country: US (occurrence: US)
  Receive Date: 20231122
  Receipt Date: 20231122
  Transmission Date: 20240109
  Serious: Yes (Other)
  Sender: FDA-Public Use
  Company Number: US-ABBVIE-5499082

PATIENT
  Sex: Female

DRUGS (1)
  1. SKYRIZI [Suspect]
     Active Substance: RISANKIZUMAB-RZAA
     Indication: Psoriasis
     Dosage: SKYRIZI 150 MG/ML SD PEN 1^S INSTRUCTIONS INJECT 150 MG (1 ML) UNDER THE SKIN EVERY 12 WEEKS
     Route: 058
     Dates: start: 20220826

REACTIONS (3)
  - Immune system disorder [Unknown]
  - Systemic lupus erythematosus [Unknown]
  - Pain [Unknown]
